FAERS Safety Report 25202886 (Version 1)
Quarter: 2025Q2

REPORT INFORMATION
  Report Type: Spontaneous
  Country: ES (occurrence: ES)
  Receive Date: 20250416
  Receipt Date: 20250416
  Transmission Date: 20250717
  Serious: Yes (Hospitalization)
  Sender: RECORDATI
  Company Number: ES-ORPHANEU-2025002570

PATIENT
  Age: 69 Year
  Sex: Female

DRUGS (6)
  1. OSILODROSTAT [Suspect]
     Active Substance: OSILODROSTAT
     Indication: Cushing^s syndrome
     Route: 048
  2. OSILODROSTAT [Suspect]
     Active Substance: OSILODROSTAT
     Route: 048
  3. OSILODROSTAT [Suspect]
     Active Substance: OSILODROSTAT
     Route: 048
  4. EMPAGLIFLOZIN [Concomitant]
     Active Substance: EMPAGLIFLOZIN
     Indication: Type 2 diabetes mellitus
     Route: 048
  5. SPIRONOLACTONE [Concomitant]
     Active Substance: SPIRONOLACTONE
     Indication: Hypertension
     Route: 048
  6. HYDROCORTISONE [Concomitant]
     Active Substance: HYDROCORTISONE
     Indication: Prophylaxis

REACTIONS (5)
  - Hypophosphataemia [Unknown]
  - Malnutrition [Unknown]
  - Hospitalisation [Unknown]
  - Diarrhoea [Unknown]
  - Disease progression [Recovered/Resolved]
